FAERS Safety Report 8178910-1 (Version None)
Quarter: 2012Q1

REPORT INFORMATION
  Report Type: 
  Country: None (occurrence: None)
  Receive Date: 20120302
  Receipt Date: 20120217
  Transmission Date: 20120608
  Serious: No
  Sender: FDA-Public Use
  Company Number: US-BIOGENIDEC-2011BI042507

PATIENT
  Age: 32 Year
  Sex: Female

DRUGS (1)
  1. TYSABRI [Suspect]
     Indication: MULTIPLE SCLEROSIS
     Route: 042
     Dates: start: 20111104, end: 20111104

REACTIONS (5)
  - AMNESIA [None]
  - HYPERSENSITIVITY [None]
  - BLOOD PRESSURE INCREASED [None]
  - MULTIPLE SCLEROSIS [None]
  - ABASIA [None]
